FAERS Safety Report 9940841 (Version 5)
Quarter: 2014Q3

REPORT INFORMATION
  Report Type: Spontaneous
  Country: DE (occurrence: DE)
  Receive Date: 20140303
  Receipt Date: 20140912
  Transmission Date: 20150326
  Serious: Yes (Death, Life-Threatening, Hospitalization)
  Sender: FDA-Public Use
  Company Number: DE-PFIZER INC-2014058058

PATIENT
  Age: 83 Year
  Sex: Female
  Weight: 61.5 kg

DRUGS (9)
  1. CLEXANE [Suspect]
     Active Substance: ENOXAPARIN SODIUM
     Dosage: 0.6 UNK, 2X/DAY (1-0-1)
     Route: 058
  2. RAMIPRIL 5/25 [Concomitant]
     Dosage: 0.5 DF, 1X/DAY (1/2-0-0)
  3. NOVALGIN [Concomitant]
     Active Substance: METAMIZOLE SODIUM
     Dosage: 30 DROPS, 4X/DAY
  4. ASPIRIN. [Concomitant]
     Active Substance: ASPIRIN
     Dosage: 100 MG, 1X/DAY
  5. METOPROLOL [Concomitant]
     Active Substance: METOPROLOL
     Dosage: 23.75 MG, 1X/DAY (1-0-0)
  6. MOVICOL [Concomitant]
     Active Substance: POLYETHYLENE GLYCOL 3350\POTASSIUM CHLORIDE\SODIUM BICARBONATE\SODIUM CHLORIDE
     Dosage: 1 DF, 1X/DAY (1-0-0)
  7. TREVILOR RETARD [Suspect]
     Active Substance: VENLAFAXINE HYDROCHLORIDE
     Indication: DEMENTIA ALZHEIMER^S TYPE
     Dosage: 75 MG, 1X/DAY (1-0-0)
     Dates: start: 200808, end: 201303
  8. VALORON [Concomitant]
     Active Substance: TILIDINE HYDROCHLORIDE
     Dosage: 15 DROPS, 3X/DAY
  9. MONO-EMBOLEX 0.3 [Concomitant]
     Indication: THROMBOSIS PROPHYLAXIS
     Dosage: 1 DF, 1X/DAY (1-0-0)

REACTIONS (13)
  - Sedation [Unknown]
  - Death [Fatal]
  - Syncope [Unknown]
  - Malignant neoplasm progression [Recovered/Resolved]
  - Dry mouth [Unknown]
  - Fall [Unknown]
  - Joint injury [Unknown]
  - Nightmare [Unknown]
  - Alopecia [Unknown]
  - Dizziness [Unknown]
  - Off label use [Unknown]
  - Coagulopathy [Unknown]
  - Skin haemorrhage [Unknown]

NARRATIVE: CASE EVENT DATE: 2008
